FAERS Safety Report 24340564 (Version 1)
Quarter: 2024Q3

REPORT INFORMATION
  Report Type: Spontaneous
  Country: PT (occurrence: PT)
  Receive Date: 20240919
  Receipt Date: 20240919
  Transmission Date: 20241016
  Serious: Yes (Other)
  Sender: TEVA
  Company Number: None

PATIENT
  Age: 3 Year
  Sex: Female

DRUGS (1)
  1. METHOTREXATE [Suspect]
     Active Substance: METHOTREXATE
     Indication: B-cell type acute leukaemia
     Dosage: TIME INTERVAL: CYCLICAL: DURATION: 0 DAYS ; INJECTABLE SOLUTION, METOTREXATO TEVA
     Route: 037
     Dates: start: 20240820, end: 20240820

REACTIONS (4)
  - Hypertensive crisis [Recovering/Resolving]
  - Partial seizures [Recovered/Resolved]
  - Toxicity to various agents [Recovering/Resolving]
  - Headache [Recovering/Resolving]

NARRATIVE: CASE EVENT DATE: 20240822
